FAERS Safety Report 6887029-9 (Version None)
Quarter: 2010Q3

REPORT INFORMATION
  Report Type: 
  Country: None (occurrence: None)
  Receive Date: 20100730
  Receipt Date: 20100728
  Transmission Date: 20110219
  Serious: Yes (Hospitalization, Other)
  Sender: FDA-Public Use
  Company Number: PL-ROXANE LABORATORIES, INC.-2010-RO-00936RO

PATIENT
  Age: 1 Day
  Sex: Female
  Weight: 3 kg

DRUGS (1)
  1. LORAZEPAM [Suspect]
     Indication: DRUG EXPOSURE DURING PREGNANCY
     Route: 064

REACTIONS (7)
  - CONGENITAL PNEUMONIA [None]
  - DRUG WITHDRAWAL SYNDROME NEONATAL [None]
  - FLOPPY INFANT [None]
  - INTRAUTERINE INFECTION [None]
  - NECROTISING COLITIS [None]
  - SEPSIS NEONATAL [None]
  - URINARY TRACT INFECTION NEONATAL [None]
